FAERS Safety Report 5822047-0 (Version None)
Quarter: 2008Q3

REPORT INFORMATION
  Report Type: 
  Country: None (occurrence: None)
  Receive Date: 20080717
  Receipt Date: 20080707
  Transmission Date: 20090109
  Serious: Yes (Other)
  Sender: FDA-Public Use
  Company Number: 230552J08CAN

PATIENT
  Sex: Female

DRUGS (4)
  1. REBIF [Suspect]
     Indication: RELAPSING-REMITTING MULTIPLE SCLEROSIS
     Dates: start: 20070919
  2. IBUPROFEN [Concomitant]
  3. PRAMIPEXOLE DIHYDROCHLORIDE [Concomitant]
  4. VALPROATE SODIUM [Concomitant]

REACTIONS (4)
  - DEPRESSION [None]
  - DRUG ABUSE [None]
  - INTENTIONAL SELF-INJURY [None]
  - SKIN LACERATION [None]
